FAERS Safety Report 8221538-5 (Version None)
Quarter: 2012Q1

REPORT INFORMATION
  Report Type: 
  Country: None (occurrence: None)
  Receive Date: 20120316
  Receipt Date: 20120306
  Transmission Date: 20120608
  Serious: Yes (Other)
  Sender: FDA-Public Use
  Company Number: US-2011-10857

PATIENT
  Age: 43 Year
  Sex: Female
  Weight: 101.6 kg

DRUGS (9)
  1. OPC-41061 (TOLVAPTAN) TABLET, 30MG MILLIGRAM(S) [Suspect]
     Indication: CONGENITAL RENAL DISORDER
     Dosage: 90 MG MILLIGRAM(S), DAILY DOSE, ORAL
     Route: 048
     Dates: start: 20110810, end: 20111121
  2. VERELAN [Concomitant]
  3. FLAXSEED OIL (FLAXSEED OIL) [Concomitant]
  4. VITAMIN D (COLECALCIFEROL) [Concomitant]
  5. OSTEO-BIOFLEX [Concomitant]
  6. DIOVAN [Concomitant]
  7. MULTIVITAMIN [Concomitant]
  8. ZETIA [Concomitant]
  9. TUMS (CALCIUM CARBONATE, MAGNESIUM CARBONATE, MAGNESIUM TRISILICATE) [Concomitant]

REACTIONS (11)
  - GALLBLADDER OEDEMA [None]
  - ALANINE AMINOTRANSFERASE INCREASED [None]
  - ABDOMINAL DISTENSION [None]
  - LIVER DISORDER [None]
  - CHOLECYSTITIS [None]
  - PRURITUS GENERALISED [None]
  - ASPARTATE AMINOTRANSFERASE INCREASED [None]
  - DECREASED APPETITE [None]
  - BLOOD BILIRUBIN INCREASED [None]
  - UMBILICAL HERNIA [None]
  - HEPATOTOXICITY [None]
